FAERS Safety Report 24461754 (Version 1)
Quarter: 2024Q4

REPORT INFORMATION
  Report Type: Spontaneous
  Country: US (occurrence: US)
  Receive Date: 20241018
  Receipt Date: 20241018
  Transmission Date: 20250115
  Serious: No
  Sender: ROCHE
  Company Number: US-ROCHE-3565508

PATIENT
  Sex: Female

DRUGS (11)
  1. RITUXAN [Suspect]
     Active Substance: RITUXIMAB
     Indication: Acute myeloid leukaemia
     Route: 065
  2. ALPRAZOLAM [Concomitant]
     Active Substance: ALPRAZOLAM
  3. AMLODIPINE [Concomitant]
     Active Substance: AMLODIPINE BESYLATE
     Dosage: AMLODIPINE B TAB 5MG
  4. ATORVASTATIN [Concomitant]
     Active Substance: ATORVASTATIN
  5. LIDOCAINE [Concomitant]
     Active Substance: LIDOCAINE
     Dosage: LIDOCAINE-PR CRE 2.5-2.5%
  6. LOSARTAN POTASSIUM [Concomitant]
     Active Substance: LOSARTAN POTASSIUM
  7. PROCHLORPERAZINE MALEATE [Concomitant]
     Active Substance: PROCHLORPERAZINE MALEATE
  8. TAMSULOSIN [Concomitant]
     Active Substance: TAMSULOSIN
  9. TYLENOL [Concomitant]
     Active Substance: ACETAMINOPHEN
  10. ACYCLOVIR [Concomitant]
     Active Substance: ACYCLOVIR
  11. PREDNISOLONE [Concomitant]
     Active Substance: PREDNISOLONE

REACTIONS (2)
  - Off label use [Unknown]
  - No adverse event [Unknown]
